FAERS Safety Report 8812899 (Version 2)
Quarter: 2015Q3

REPORT INFORMATION
  Report Type: Report from Study
  Country: US (occurrence: US)
  Receive Date: 20120927
  Receipt Date: 20150702
  Transmission Date: 20151125
  Serious: Yes (Death, Hospitalization, Other)
  Sender: FDA-Public Use
  Company Number: US-ROCHE-1129971

PATIENT
  Sex: Female

DRUGS (50)
  1. ELAVIL [Concomitant]
     Active Substance: AMITRIPTYLINE HYDROCHLORIDE
  2. CARBOPLATIN. [Concomitant]
     Active Substance: CARBOPLATIN
  3. FASLODEX [Concomitant]
     Active Substance: FULVESTRANT
  4. PREVACID [Concomitant]
     Active Substance: LANSOPRAZOLE
     Route: 065
  5. VICODIN [Concomitant]
     Active Substance: ACETAMINOPHEN\HYDROCODONE BITARTRATE
  6. AMBIEN [Concomitant]
     Active Substance: ZOLPIDEM TARTRATE
  7. PROCHLORPERAZINE MALEATE. [Concomitant]
     Active Substance: PROCHLORPERAZINE MALEATE
  8. DILAUDID [Concomitant]
     Active Substance: HYDROMORPHONE HYDROCHLORIDE
     Indication: PAIN
     Dosage: PRN
     Route: 065
  9. FILGRASTIM [Concomitant]
     Active Substance: FILGRASTIM
     Route: 065
  10. GENTAMICIN SULFATE/PREDNISOLONE ACETATE [Concomitant]
  11. PALONOSETRON HYDROCHLORIDE [Concomitant]
     Active Substance: PALONOSETRON HYDROCHLORIDE
  12. OS-CAL 500 WITH D [Concomitant]
  13. SUDAFED (UNITED STATES) [Concomitant]
  14. AMOXICILLIN. [Concomitant]
     Active Substance: AMOXICILLIN
  15. RESTORIL [Concomitant]
     Active Substance: TEMAZEPAM
  16. DOCETAXEL. [Concomitant]
     Active Substance: DOCETAXEL
  17. FULVESTRANT [Concomitant]
     Active Substance: FULVESTRANT
  18. COMPAZINE [Concomitant]
     Active Substance: PROCHLORPERAZINE MALEATE
  19. NAPROSYN [Concomitant]
     Active Substance: NAPROXEN
     Route: 048
  20. ZOLEDRONIC ACID [Concomitant]
     Active Substance: ZOLEDRONIC ACID
  21. BENADRYL [Concomitant]
     Active Substance: DIPHENHYDRAMINE HYDROCHLORIDE
  22. MS CONTIN [Concomitant]
     Active Substance: MORPHINE SULFATE
     Route: 048
  23. IBU [Concomitant]
     Active Substance: IBUPROFEN
  24. HERCEPTIN [Suspect]
     Active Substance: TRASTUZUMAB
     Indication: BREAST CANCER FEMALE
     Route: 042
     Dates: start: 20051005
  25. CEFTRIAXONE SODIUM. [Concomitant]
     Active Substance: CEFTRIAXONE SODIUM
     Route: 065
  26. MIRALAX [Concomitant]
     Active Substance: POLYETHYLENE GLYCOL 3350
  27. LOMOTIL (UNITED STATES) [Concomitant]
  28. EPOETIN ALFA [Concomitant]
     Active Substance: ERYTHROPOIETIN
  29. PERCOCET [Concomitant]
     Active Substance: ACETAMINOPHEN\OXYCODONE HYDROCHLORIDE
  30. DARVOCET-N 100 [Concomitant]
     Active Substance: ACETAMINOPHEN\PROPOXYPHENE NAPSYLATE
  31. PATANOL [Concomitant]
     Active Substance: OLOPATADINE HYDROCHLORIDE
  32. FOSAMAX [Concomitant]
     Active Substance: ALENDRONATE SODIUM
  33. MEGACE [Concomitant]
     Active Substance: MEGESTROL ACETATE
     Route: 048
  34. ENSURE [Concomitant]
     Active Substance: AMINO ACIDS\DEXTROSE\ELECTROLYTES NOS\SOYBEAN OIL\VITAMINS
  35. XELODA [Concomitant]
     Active Substance: CAPECITABINE
     Route: 065
  36. POTASSIUM CHLORIDE. [Concomitant]
     Active Substance: POTASSIUM CHLORIDE
  37. MORPHINE SULFATE. [Concomitant]
     Active Substance: MORPHINE SULFATE
  38. DIAZEPAM. [Concomitant]
     Active Substance: DIAZEPAM
     Route: 065
  39. PEGFILGRASTIM [Concomitant]
     Active Substance: PEGFILGRASTIM
     Route: 065
  40. GEMCITABINE HCL [Concomitant]
     Active Substance: GEMCITABINE HYDROCHLORIDE
  41. DEXAMETHASONE SODIUM SULFATE [Concomitant]
     Active Substance: DEXAMETHASONE SODIUM SULFATE
  42. ACETAMINOPHEN/HYDROCODONE [Concomitant]
     Active Substance: ACETAMINOPHEN\HYDROCODONE
  43. DIPHENOXYLATE/ATROPINE [Concomitant]
     Active Substance: ATROPINE\DIPHENOXYLATE
  44. LOVENOX [Concomitant]
     Active Substance: ENOXAPARIN SODIUM
     Route: 058
  45. DECADRON [Concomitant]
     Active Substance: DEXAMETHASONE
     Route: 048
  46. LEVAQUIN [Concomitant]
     Active Substance: LEVOFLOXACIN
     Route: 042
  47. DURAGESIC [Concomitant]
     Active Substance: FENTANYL
  48. ATIVAN [Concomitant]
     Active Substance: LORAZEPAM
     Indication: INSOMNIA
  49. BENTYL [Concomitant]
     Active Substance: DICYCLOMINE HYDROCHLORIDE
  50. LASIX [Concomitant]
     Active Substance: FUROSEMIDE
     Indication: PERIPHERAL SWELLING

REACTIONS (38)
  - Nausea [Unknown]
  - Dehydration [Unknown]
  - Radiation skin injury [Recovered/Resolved]
  - Mass [Unknown]
  - Weight decreased [Unknown]
  - Chills [Unknown]
  - Insomnia [Unknown]
  - Death [Fatal]
  - Musculoskeletal chest pain [Unknown]
  - Constipation [Unknown]
  - Cough [Unknown]
  - Mental status changes [Unknown]
  - Anaemia [Unknown]
  - Metastases to liver [Unknown]
  - Confusional state [Unknown]
  - Radiation necrosis [Unknown]
  - Pain in extremity [Unknown]
  - Lacrimation increased [Unknown]
  - Balance disorder [Unknown]
  - Osteolysis [Unknown]
  - Increased tendency to bruise [Unknown]
  - Malnutrition [Unknown]
  - Leukocytosis [Unknown]
  - Dyspnoea [Unknown]
  - Neck pain [Unknown]
  - Decreased appetite [Unknown]
  - Peripheral swelling [Unknown]
  - Petechiae [Unknown]
  - Joint swelling [Not Recovered/Not Resolved]
  - Dysphagia [Unknown]
  - Night sweats [Unknown]
  - Dyspnoea exertional [Unknown]
  - Pyrexia [Unknown]
  - Pain [Unknown]
  - Sepsis [Unknown]
  - Joint dislocation [Unknown]
  - Fatigue [Unknown]
  - Paraesthesia [Unknown]
